FAERS Safety Report 12155965 (Version 1)
Quarter: 2016Q1

REPORT INFORMATION
  Report Type: Spontaneous
  Country: US (occurrence: US)
  Receive Date: 20160307
  Receipt Date: 20160307
  Transmission Date: 20160526
  Serious: Yes (Hospitalization, Other)
  Sender: FDA-Public Use
  Company Number: US-SHENZHEN TECHDOW PHARMACEUTICAL CO. LTD-US-2016TEC0000011

PATIENT

DRUGS (3)
  1. HEPARIN SODIUM INJECTION USP, PRESERVATIVE FREE [Suspect]
     Active Substance: HEPARIN SODIUM
     Indication: THROMBOSIS PROPHYLAXIS
     Dosage: UNK
     Route: 058
  2. HEPARIN SODIUM INJECTION USP, PRESERVATIVE FREE [Suspect]
     Active Substance: HEPARIN SODIUM
     Dosage: UNK
     Route: 013
  3. HEPARIN SODIUM INJECTION USP, PRESERVATIVE FREE [Suspect]
     Active Substance: HEPARIN SODIUM
     Indication: ANGIOGRAM
     Dosage: 8 DOSES OF 5000 UNITS, OVER 3 DAYS

REACTIONS (14)
  - Pulmonary embolism [Recovered/Resolved]
  - Hypoxia [Recovered/Resolved]
  - Seizure [Recovered/Resolved]
  - Heparin-induced thrombocytopenia [Recovered/Resolved]
  - Deep vein thrombosis [Recovered/Resolved]
  - Disseminated intravascular coagulation [Recovered/Resolved]
  - Intracardiac thrombus [Recovered/Resolved]
  - Venous thrombosis [Recovered/Resolved]
  - Headache [Recovered/Resolved]
  - Shock [Recovered/Resolved]
  - Cardiac arrest [Recovered/Resolved]
  - Cerebral haemorrhage [Recovered/Resolved]
  - Muscular weakness [Recovered/Resolved]
  - Acute respiratory failure [Recovered/Resolved]
